FAERS Safety Report 9400003 (Version 1)
Quarter: 2013Q3

REPORT INFORMATION
  Report Type: Spontaneous
  Country: US (occurrence: US)
  Receive Date: 20130715
  Receipt Date: 20130715
  Transmission Date: 20140515
  Serious: No
  Sender: FDA-Public Use
  Company Number: US-BAYER-2013-076141

PATIENT
  Age: 64 Year
  Sex: Male

DRUGS (3)
  1. LEVITRA [Suspect]
     Indication: ERECTILE DYSFUNCTION
     Dosage: 20 MG/10 MG/5 MG/2.5 MG, TAKES ONCE EVERY TWO WEEKS MAYBE THREE
     Route: 048
     Dates: start: 2011
  2. EXFORGE [Concomitant]
     Indication: HYPERTENSION
     Route: 048
  3. ATORVASTATIN [Concomitant]
     Indication: BLOOD CHOLESTEROL INCREASED
     Route: 048

REACTIONS (3)
  - Discomfort [Not Recovered/Not Resolved]
  - Feeling abnormal [Not Recovered/Not Resolved]
  - Wrong technique in drug usage process [None]
